APPROVED DRUG PRODUCT: TOBRAMYCIN SULFATE
Active Ingredient: TOBRAMYCIN SULFATE
Strength: EQ 40MG BASE/ML
Dosage Form/Route: INJECTABLE;INJECTION
Application: A209621 | Product #002 | TE Code: AP
Applicant: GLAND PHARMA LTD
Approved: Feb 11, 2021 | RLD: No | RS: No | Type: RX